FAERS Safety Report 21099743 (Version 4)
Quarter: 2022Q3

REPORT INFORMATION
  Report Type: Spontaneous
  Country: BR (occurrence: BR)
  Receive Date: 20220719
  Receipt Date: 20220819
  Transmission Date: 20221027
  Serious: Yes (Life-Threatening, Other)
  Sender: FDA-Public Use
  Company Number: BR-PFIZER INC-202200974633

PATIENT
  Age: 46 Year
  Sex: Female
  Weight: 82 kg

DRUGS (2)
  1. LORAZEPAM [Suspect]
     Active Substance: LORAZEPAM
     Indication: Panic disorder
     Dosage: 2 TABLETS OF 2 MG, DAILY
     Dates: start: 202205
  2. LORAZEPAM [Suspect]
     Active Substance: LORAZEPAM
     Dosage: 1 TABLET IF IN CRISIS

REACTIONS (8)
  - Withdrawal syndrome [Not Recovered/Not Resolved]
  - Tremor [Not Recovered/Not Resolved]
  - Chest pain [Recovered/Resolved]
  - Peripheral coldness [Not Recovered/Not Resolved]
  - Headache [Not Recovered/Not Resolved]
  - Nausea [Recovered/Resolved]
  - Blood pressure increased [Not Recovered/Not Resolved]
  - Confusional state [Not Recovered/Not Resolved]

NARRATIVE: CASE EVENT DATE: 20220713
